FAERS Safety Report 4473375-5 (Version None)
Quarter: 2004Q4

REPORT INFORMATION
  Report Type: 
  Country: None (occurrence: None)
  Receive Date: 20041008
  Receipt Date: 20040930
  Transmission Date: 20050328
  Serious: Yes (Other)
  Sender: FDA-Public Use
  Company Number: HQWYE407818AUG04

PATIENT
  Age: 59 Year
  Sex: Female

DRUGS (2)
  1. EFFEXOR [Suspect]
     Indication: DEPRESSION
     Dosage: 75 MG 1X PER 1 DAY ORAL
     Route: 048
     Dates: start: 20040601
  2. SURMONTIL [Concomitant]

REACTIONS (5)
  - ABDOMINAL DISTENSION [None]
  - DRUG INEFFECTIVE [None]
  - DYSPEPSIA [None]
  - HOT FLUSH [None]
  - SENSATION OF PRESSURE [None]
